FAERS Safety Report 10422675 (Version 12)
Quarter: 2015Q2

REPORT INFORMATION
  Report Type: Report from Study
  Country: BE (occurrence: BE)
  Receive Date: 20140902
  Receipt Date: 20150603
  Transmission Date: 20150821
  Serious: Yes (Hospitalization)
  Sender: FDA-Public Use
  Company Number: BE-ROCHE-1445426

PATIENT
  Age: 42 Year
  Sex: Female
  Weight: 80 kg

DRUGS (10)
  1. TRASTUZUMAB EMTANSINE [Suspect]
     Active Substance: ADO-TRASTUZUMAB EMTANSINE
     Indication: BREAST CANCER
     Dosage: LAST DOSE PRIOR TO SAE ORAL MUCOSITIS WAS ON 09/JUL/2014, 389 MG?LAST DOSE PRIOR TO SAE LOSS OF APPE
     Route: 042
     Dates: start: 20130322
  2. REMERGON [Concomitant]
     Active Substance: MIRTAZAPINE
     Route: 065
     Dates: start: 20120430, end: 20140828
  3. DAFALGAN [Concomitant]
     Active Substance: ACETAMINOPHEN
     Route: 065
     Dates: start: 201309
  4. ZOLPIDEM [Concomitant]
     Active Substance: ZOLPIDEM\ZOLPIDEM TARTRATE
     Route: 065
     Dates: start: 20121121
  5. VISMED [Concomitant]
     Dosage: DROP
     Route: 065
     Dates: start: 20140207, end: 20140618
  6. FLUDEX (BELGIUM) [Concomitant]
     Route: 065
     Dates: start: 20131205
  7. EFFORTIL [Concomitant]
     Active Substance: ETILEFRINE HYDROCHLORIDE
     Route: 065
     Dates: start: 20140610
  8. SULFARLEM [Concomitant]
     Active Substance: ANETHOLTRITHION
     Route: 065
     Dates: start: 20140317
  9. PANTOMED (PANTOPRAZOLE) [Concomitant]
     Route: 065
     Dates: start: 20140507
  10. BEFACT FORTE [Concomitant]
     Route: 065
     Dates: start: 20140429

REACTIONS (2)
  - Decreased appetite [Recovered/Resolved]
  - Stomatitis [Recovered/Resolved]

NARRATIVE: CASE EVENT DATE: 20140127
